FAERS Safety Report 11264898 (Version 1)
Quarter: 2015Q3

REPORT INFORMATION
  Report Type: Spontaneous
  Country: US (occurrence: None)
  Receive Date: 20150710
  Receipt Date: 20150710
  Transmission Date: 20151125
  Serious: Yes (Other)
  Sender: FDA-Public Use
  Company Number: None

PATIENT
  Age: 13 Year
  Sex: Female
  Weight: 53.07 kg

DRUGS (1)
  1. CIPROFLOXACIN OPHTHALMIC SOLUTION, USP 0.3% [Suspect]
     Active Substance: CIPROFLOXACIN
     Indication: CHEMICAL EYE INJURY
     Dosage: 2 DROPS IN THE EYE  3X/DAY  TOPICAL
     Route: 061
     Dates: start: 20150704

REACTIONS (5)
  - Oedema peripheral [None]
  - Pruritus [None]
  - Urticaria [None]
  - Oedema [None]
  - Burning sensation [None]

NARRATIVE: CASE EVENT DATE: 20150704
